FAERS Safety Report 15072986 (Version 1)
Quarter: 2018Q2

REPORT INFORMATION
  Report Type: Spontaneous
  Country: GB (occurrence: GB)
  Receive Date: 20180627
  Receipt Date: 20180627
  Transmission Date: 20180711
  Serious: Yes (Other)
  Sender: FDA-Public Use
  Company Number: GB-TEVA-2018-GB-912263

PATIENT
  Age: 53 Year
  Sex: Male
  Weight: 91 kg

DRUGS (15)
  1. CLENIL MODULITE [Concomitant]
     Active Substance: BECLOMETHASONE DIPROPIONATE
     Dosage: 4 DOSAGE FORMS DAILY;
     Route: 055
     Dates: start: 20170710
  2. ZOPICLONE [Concomitant]
     Active Substance: ZOPICLONE
     Dosage: 2 DOSAGE FORMS DAILY; AT NIGHT
     Route: 065
     Dates: start: 20170710
  3. TRAMADOL. [Concomitant]
     Active Substance: TRAMADOL
     Dosage: 1-2 TABLET UPTO 4 TIMES A DAY
     Route: 065
     Dates: start: 20171206, end: 20180420
  4. FENTANYL. [Concomitant]
     Active Substance: FENTANYL
     Dosage: 3 DOSAGE FORMS DAILY; AND REMOVE THE OLD ONE.
     Route: 065
     Dates: start: 20171206, end: 20180227
  5. AMITRIPTYLINE HYDROCHLORIDE. [Concomitant]
     Active Substance: AMITRIPTYLINE HYDROCHLORIDE
     Dosage: 1 DOSAGE FORMS DAILY; AT NIGHT
     Route: 065
     Dates: start: 20170710
  6. TERBUTALINE [Concomitant]
     Active Substance: TERBUTALINE
     Dosage: AS DIRECTED
     Route: 065
     Dates: start: 20170710
  7. QUININE SULFATE. [Suspect]
     Active Substance: QUININE SULFATE
     Indication: MUSCLE SPASMS
     Route: 048
     Dates: start: 20180501, end: 20180509
  8. AMOXICILLIN. [Concomitant]
     Active Substance: AMOXICILLIN
     Dosage: 3 DOSAGE FORMS DAILY;
     Route: 065
     Dates: start: 20170710
  9. IBUPROFEN. [Concomitant]
     Active Substance: IBUPROFEN
     Dosage: 3 DOSAGE FORMS DAILY;
     Route: 065
     Dates: start: 20180118
  10. BACTROBAN [Concomitant]
     Active Substance: MUPIROCIN\MUPIROCIN CALCIUM
     Dosage: 3 DOSAGE FORMS DAILY; AROUND LIPS UNTIL RESOLVED.
     Route: 065
     Dates: start: 20180219, end: 20180226
  11. COCODAMOL [Concomitant]
     Active Substance: ACETAMINOPHEN\CODEINE PHOSPHATE
     Dosage: TAKE 1 OR 2 FOUR TIMES DAILY
     Route: 065
     Dates: start: 20180420
  12. SCHERIPROCT [Concomitant]
     Active Substance: DIBUCAINE HYDROCHLORIDE\PREDNISOLONE
     Dosage: AS DIRECTED
     Route: 065
     Dates: start: 20170710
  13. PARACETAMOL [Concomitant]
     Active Substance: ACETAMINOPHEN
     Dosage: 8 DOSAGE FORMS DAILY;
     Route: 065
     Dates: start: 20180118
  14. CLOBETASOL PROPIONATE. [Concomitant]
     Active Substance: CLOBETASOL PROPIONATE
     Dosage: 1 DOSAGE FORMS DAILY; AS DIRECTED
     Route: 065
     Dates: start: 20170710
  15. DIPROBASE [Concomitant]
     Active Substance: CHLOROCRESOL
     Dosage: APPLY
     Route: 065
     Dates: start: 20170710

REACTIONS (2)
  - Diarrhoea [Recovered/Resolved]
  - Gastrooesophageal reflux disease [Recovering/Resolving]

NARRATIVE: CASE EVENT DATE: 20180502
